FAERS Safety Report 18430489 (Version 1)
Quarter: 2020Q4

REPORT INFORMATION
  Report Type: Spontaneous
  Country: FR (occurrence: FR)
  Receive Date: 20201027
  Receipt Date: 20201027
  Transmission Date: 20210114
  Serious: Yes (Other)
  Sender: FDA-Public Use
  Company Number: NVSC2020FR285637

PATIENT
  Age: 23 Year
  Sex: Male

DRUGS (27)
  1. PREDNISONE. [Suspect]
     Active Substance: PREDNISONE
     Dosage: 20 MG, QD (TABLET)
     Route: 048
     Dates: start: 2017, end: 2017
  2. PREDNISONE. [Suspect]
     Active Substance: PREDNISONE
     Dosage: 25 MG, QD; SLOWLY WEANED FOR A FORTNIGHT
     Route: 048
     Dates: start: 2017, end: 2017
  3. PREDNISONE. [Suspect]
     Active Substance: PREDNISONE
     Dosage: 10 MG, QD (TABLET)
     Route: 048
     Dates: start: 2019, end: 2019
  4. PREDNISONE. [Suspect]
     Active Substance: PREDNISONE
     Dosage: 10 MG, QD (TABLET)
     Route: 048
     Dates: start: 2017, end: 2018
  5. PREDNISONE. [Suspect]
     Active Substance: PREDNISONE
     Dosage: 75 MG, QD (TABLET)
     Route: 048
     Dates: start: 2017, end: 2017
  6. PREDNISONE. [Suspect]
     Active Substance: PREDNISONE
     Dosage: 25 MG, QD (TABLET)
     Route: 048
     Dates: start: 2018, end: 2019
  7. PREDNISONE. [Suspect]
     Active Substance: PREDNISONE
     Dosage: 10 MG, QD (TABLET)
     Route: 048
     Dates: start: 2017, end: 2017
  8. PREDNISONE. [Suspect]
     Active Substance: PREDNISONE
     Dosage: 75 MG, QD (TABLET)
     Route: 048
     Dates: start: 2017, end: 2017
  9. PREDNISONE. [Suspect]
     Active Substance: PREDNISONE
     Dosage: PREDNISONE DOSAGE WAS WEANED MORE SLOWLY OVER NEXT 5 MONTHS
     Route: 048
     Dates: start: 2017, end: 2017
  10. PREDNISONE. [Suspect]
     Active Substance: PREDNISONE
     Dosage: 25 MG, QD (TABLET)
     Route: 048
     Dates: start: 2018, end: 2018
  11. PREDNISONE. [Suspect]
     Active Substance: PREDNISONE
     Dosage: 50 MG, QD (TABLET)
     Route: 048
     Dates: start: 2018, end: 2018
  12. PREDNISONE. [Suspect]
     Active Substance: PREDNISONE
     Dosage: WEANED AND CEASED (TABLET)
     Route: 048
     Dates: start: 2019, end: 2019
  13. PREDNISONE. [Suspect]
     Active Substance: PREDNISONE
     Dosage: 25 MG, QD (TABLET)
     Route: 048
     Dates: start: 2017, end: 2017
  14. PREDNISONE. [Suspect]
     Active Substance: PREDNISONE
     Dosage: 50 MG, QD (TABLET)
     Route: 048
     Dates: start: 2018, end: 2018
  15. PREDNISONE. [Suspect]
     Active Substance: PREDNISONE
     Dosage: 20 MG, QD (TABLET)
     Route: 048
     Dates: start: 2019, end: 2019
  16. PREDNISONE. [Suspect]
     Active Substance: PREDNISONE
     Dosage: 75 MG, QD (TABLET)
     Route: 048
     Dates: start: 2019, end: 2019
  17. PREDNISONE. [Suspect]
     Active Substance: PREDNISONE
     Indication: GLOMERULONEPHRITIS MINIMAL LESION
     Dosage: 50 MG, QD (TABLET)
     Route: 048
     Dates: start: 2017, end: 2017
  18. PREDNISONE. [Suspect]
     Active Substance: PREDNISONE
     Dosage: 15 MG, QD (TABLET)
     Route: 048
     Dates: start: 2017, end: 2017
  19. PREDNISONE. [Suspect]
     Active Substance: PREDNISONE
     Dosage: 25 MG, QD (TABLET)
     Route: 048
     Dates: start: 2017, end: 2017
  20. PREDNISONE. [Suspect]
     Active Substance: PREDNISONE
     Dosage: 75 MG, QD (TABLET)
     Route: 048
     Dates: start: 2018, end: 2018
  21. PREDNISONE. [Suspect]
     Active Substance: PREDNISONE
     Dosage: 20 MG, QD (TABET)
     Route: 048
     Dates: start: 2019, end: 2019
  22. SULFASALAZINE. [Concomitant]
     Active Substance: SULFASALAZINE
     Indication: COLITIS ULCERATIVE
     Dosage: UNK
     Route: 065
  23. PREDNISONE. [Suspect]
     Active Substance: PREDNISONE
     Dosage: 50 MG, QD (TABLET)
     Route: 048
     Dates: start: 2019, end: 2019
  24. PREDNISONE. [Suspect]
     Active Substance: PREDNISONE
     Dosage: 25 MG, QD (TABLET)
     Route: 048
     Dates: start: 2019, end: 2019
  25. PREDNISONE. [Suspect]
     Active Substance: PREDNISONE
     Dosage: 50 MG, QD; SLOWLY WEANED FOR A FORTNIGHT
     Route: 048
     Dates: start: 2017, end: 2017
  26. PREDNISONE. [Suspect]
     Active Substance: PREDNISONE
     Dosage: 20 MG, QD (TABLET)
     Route: 048
     Dates: start: 2018, end: 2018
  27. PREDNISONE. [Suspect]
     Active Substance: PREDNISONE
     Dosage: 40 MG, QD (TABLET)
     Route: 048
     Dates: start: 2019, end: 2019

REACTIONS (11)
  - Albuminuria [Recovered/Resolved]
  - IgM nephropathy [Recovered/Resolved]
  - Oedema [Recovered/Resolved]
  - Hypoalbuminaemia [Recovered/Resolved]
  - Urine abnormality [Recovered/Resolved]
  - Glomerulonephritis minimal lesion [Recovered/Resolved]
  - Condition aggravated [Recovered/Resolved]
  - Rebound effect [Recovered/Resolved]
  - Steroid dependence [Recovered/Resolved]
  - Proteinuria [Recovered/Resolved]
  - Weight increased [Recovered/Resolved]

NARRATIVE: CASE EVENT DATE: 2017
